FAERS Safety Report 7834210-8 (Version None)
Quarter: 2011Q4

REPORT INFORMATION
  Report Type: 
  Country: None (occurrence: None)
  Receive Date: 20111024
  Receipt Date: 20111017
  Transmission Date: 20120403
  Serious: Yes (Other)
  Sender: FDA-Public Use
  Company Number: PHHY2010MX49365

PATIENT
  Sex: Female

DRUGS (2)
  1. DIOVAN HCT [Suspect]
     Indication: HYPERTENSION
     Dosage: 1 DF, (80/12.5MG) DAILY
     Route: 048
     Dates: start: 20040726
  2. NORMIN [Concomitant]

REACTIONS (5)
  - LIGAMENT RUPTURE [None]
  - JOINT INJURY [None]
  - HYPOTHYROIDISM [None]
  - JOINT EFFUSION [None]
  - ARTHRALGIA [None]
